FAERS Safety Report 8839453 (Version 1)
Quarter: 2012Q4

REPORT INFORMATION
  Report Type: Spontaneous
  Country: US (occurrence: None)
  Receive Date: 20121012
  Receipt Date: 20121012
  Transmission Date: 20130627
  Serious: Yes (Other)
  Sender: FDA-Public Use
  Company Number: None

PATIENT
  Age: 31 Year
  Sex: Female
  Weight: 61.69 kg

DRUGS (1)
  1. TESTIM [Suspect]

REACTIONS (4)
  - Acne [None]
  - Breast enlargement [None]
  - Weight increased [None]
  - Aggression [None]
